FAERS Safety Report 5869103-9 (Version None)
Quarter: 2008Q3

REPORT INFORMATION
  Report Type: 
  Country: None (occurrence: None)
  Receive Date: 20080903
  Receipt Date: 20080828
  Transmission Date: 20090109
  Serious: Yes (Other)
  Sender: FDA-Public Use
  Company Number: US-BAYER-200812362BCC

PATIENT
  Age: 8 Month
  Sex: Female
  Weight: 7.711 kg

DRUGS (2)
  1. PHILLIPS MILK OF MAGNESIA CHERRY [Suspect]
     Indication: CONSTIPATION
     Dosage: TOTAL DAILY DOSE: 5 ML
     Route: 048
     Dates: start: 20080604, end: 20080604
  2. PHILLIPS MILK OF MAGNESIA CHERRY [Suspect]
     Dosage: TOTAL DAILY DOSE: 2.5 ML
     Route: 048
     Dates: start: 20080605, end: 20080605

REACTIONS (1)
  - DIARRHOEA HAEMORRHAGIC [None]
